FAERS Safety Report 5713884-1 (Version None)
Quarter: 2008Q2

REPORT INFORMATION
  Report Type: 
  Country: None (occurrence: None)
  Receive Date: 20080421
  Receipt Date: 20080407
  Transmission Date: 20081010
  Serious: Yes (Death, Life-Threatening, Hospitalization)
  Sender: FDA-Public Use
  Company Number: 2008US000634

PATIENT
  Age: 57 Year
  Sex: Male
  Weight: 58.7 kg

DRUGS (17)
  1. AMBISOME [Suspect]
     Indication: ENDOCARDITIS CANDIDA
     Dosage: 300 MG, UID/QD, IV NOS; 300 MG, UID/QD, IV NOS
     Route: 042
     Dates: start: 20070628, end: 20070718
  2. AMBISOME [Suspect]
     Indication: ENDOCARDITIS CANDIDA
     Dosage: 300 MG, UID/QD, IV NOS; 300 MG, UID/QD, IV NOS
     Route: 042
     Dates: start: 20060901
  3. FUNGUARD (MICAFUNGIN SODIUM) [Concomitant]
  4. VFEND [Concomitant]
  5. ITRACONAZOLE [Concomitant]
  6. ASPIRIN [Concomitant]
  7. WARFARIN SODIUM [Concomitant]
  8. URSO 250 [Concomitant]
  9. METHYCOBAL (MECOBALAMIN) [Concomitant]
  10. LANSOPRAZOLE [Concomitant]
  11. ANPLAG (SARPOGRELATE HDYROCHLORIDE) [Concomitant]
  12. LASIX [Concomitant]
  13. ALDACTONE [Concomitant]
  14. PARACETAMOL [Concomitant]
  15. GLUCONSAN K (POTASSIUM GLUCONATE) [Concomitant]
  16. OMEGACIN (BIAPENEM) [Concomitant]
  17. SLOW-K [Concomitant]

REACTIONS (8)
  - ABDOMINAL PAIN UPPER [None]
  - CARDIO-RESPIRATORY ARREST [None]
  - DISEASE RECURRENCE [None]
  - ENDOCARDITIS CANDIDA [None]
  - HAEMOLYTIC ANAEMIA [None]
  - HYPOKALAEMIA [None]
  - INFLAMMATION [None]
  - PYREXIA [None]
